FAERS Safety Report 16857535 (Version 1)
Quarter: 2019Q3

REPORT INFORMATION
  Report Type: Spontaneous
  Country: GR (occurrence: GR)
  Receive Date: 20190926
  Receipt Date: 20190926
  Transmission Date: 20191005
  Serious: Yes (Hospitalization, Other)
  Sender: FDA-Public Use
  Company Number: GR-PFIZER INC-2019410040

PATIENT
  Age: 72 Year
  Sex: Male
  Weight: 88 kg

DRUGS (5)
  1. TAZOCIN [Suspect]
     Active Substance: PIPERACILLIN SODIUM\TAZOBACTAM SODIUM
     Dosage: UNK
     Route: 042
     Dates: start: 20190610, end: 20190624
  2. CUBICIN [Suspect]
     Active Substance: DAPTOMYCIN
     Indication: SKIN ULCER
     Dosage: 500 MG, UNK
     Route: 042
     Dates: start: 20190610, end: 20190624
  3. ZINADOL [Suspect]
     Active Substance: CEFUROXIME AXETIL
     Dosage: 500 MG, BID (1000MG 1X/DAY)
     Route: 048
     Dates: start: 20190606, end: 20190610
  4. CUBICIN [Suspect]
     Active Substance: DAPTOMYCIN
     Indication: FEBRILE INFECTION
  5. APIDRA [Concomitant]
     Active Substance: INSULIN GLULISINE
     Indication: DIABETES MELLITUS
     Dosage: UNK
     Route: 058
     Dates: start: 20190610

REACTIONS (6)
  - Cellulitis [Recovered/Resolved]
  - Gamma-glutamyltransferase increased [Unknown]
  - C-reactive protein increased [Unknown]
  - Blood creatinine increased [Unknown]
  - Transaminases increased [Unknown]
  - Blood alkaline phosphatase increased [Unknown]

NARRATIVE: CASE EVENT DATE: 20190606
